FAERS Safety Report 6681861-2 (Version None)
Quarter: 2010Q2

REPORT INFORMATION
  Report Type: 
  Country: None (occurrence: None)
  Receive Date: 20100414
  Receipt Date: 20100121
  Transmission Date: 20101027
  Serious: Yes (Life-Threatening)
  Sender: FDA-Public Use
  Company Number: US-ROCHE-681102

PATIENT
  Age: 49 Year
  Sex: Female

DRUGS (9)
  1. HERCEPTIN [Suspect]
     Route: 042
     Dates: start: 20081030
  2. HERCEPTIN [Suspect]
     Dosage: FORM: POWDER FOR INFUSION; ROUTE: INTRAVENOUS (NOT OTHERWISE SPECIFIED)
     Route: 042
     Dates: start: 20081204, end: 20081204
  3. TAXOTERE [Suspect]
     Route: 042
     Dates: start: 20081030
  4. TAXOTERE [Suspect]
     Dosage: FORM : SOLUTION FOR INFUSION AND ROUTE: INTRAVENOUS (NOT OTHERWISE SPECIFIED).
     Route: 042
     Dates: start: 20081204, end: 20081204
  5. SULFAMETHOXAZOLE AND TRIMETHOPRIM [Suspect]
     Indication: DRUG USE FOR UNKNOWN INDICATION
     Route: 048
     Dates: start: 20080930, end: 20081201
  6. LEVOTHYROX [Concomitant]
  7. LOPINAVIR AND RITONAVIR [Concomitant]
  8. ABACAVIR [Concomitant]
  9. LAMIVUDINE [Concomitant]

REACTIONS (1)
  - STEVENS-JOHNSON SYNDROME [None]
